FAERS Safety Report 15019786 (Version 1)
Quarter: 2018Q2

REPORT INFORMATION
  Report Type: Spontaneous
  Country: IT (occurrence: IT)
  Receive Date: 20180618
  Receipt Date: 20180618
  Transmission Date: 20180711
  Serious: Yes (Hospitalization, Other)
  Sender: FDA-Public Use
  Company Number: IT-ACCORD-068408

PATIENT
  Age: 69 Year
  Sex: Male

DRUGS (4)
  1. METHYLPREDNISOLONE. [Suspect]
     Active Substance: METHYLPREDNISOLONE
     Indication: GLOMERULONEPHRITIS
     Route: 042
  2. METHOTREXATE. [Suspect]
     Active Substance: METHOTREXATE
     Indication: IMMUNOSUPPRESSION
  3. PREDNISONE. [Suspect]
     Active Substance: PREDNISONE
     Indication: IMMUNOSUPPRESSION
     Dosage: 1 MG/KG, 50 MG/DAY WITH GRADUAL TAPERING
     Route: 048
  4. CYCLOPHOSPHAMIDE/CYCLOPHOSPHAMIDE MONOHYDRATE [Suspect]
     Active Substance: CYCLOPHOSPHAMIDE
     Indication: GLOMERULONEPHRITIS
     Dosage: TO BE REPEATED ONCE A MONTH FOR SIX MONTHS

REACTIONS (5)
  - Large intestine perforation [Recovered/Resolved]
  - Acute kidney injury [Recovered/Resolved]
  - Glomerulonephritis [Recovered/Resolved]
  - Cytomegalovirus colitis [Recovered/Resolved]
  - Cytomegalovirus infection [Recovered/Resolved]
